FAERS Safety Report 24981874 (Version 1)
Quarter: 2025Q1

REPORT INFORMATION
  Report Type: Spontaneous
  Country: BR (occurrence: BR)
  Receive Date: 20250218
  Receipt Date: 20250218
  Transmission Date: 20250408
  Serious: Yes (Other)
  Sender: GE HEALTHCARE
  Company Number: BR-GE HEALTHCARE-2025CSU001856

PATIENT
  Age: 59 Year
  Sex: Male

DRUGS (1)
  1. OMNIPAQUE [Suspect]
     Active Substance: IOHEXOL
     Indication: Computerised tomogram
     Route: 065
     Dates: start: 20250201, end: 20250201

REACTIONS (5)
  - Pallor [Unknown]
  - Fatigue [Unknown]
  - Dyspnoea [Unknown]
  - Oxygen saturation decreased [Unknown]
  - Chills [Unknown]

NARRATIVE: CASE EVENT DATE: 20250201
